FAERS Safety Report 19129819 (Version 1)
Quarter: 2021Q2

REPORT INFORMATION
  Report Type: Spontaneous
  Country: RU (occurrence: RU)
  Receive Date: 20210413
  Receipt Date: 20210413
  Transmission Date: 20210717
  Serious: Yes (Other)
  Sender: FDA-Public Use
  Company Number: RU-SA-2021SA120635

PATIENT
  Age: 39 Year
  Sex: Female

DRUGS (1)
  1. XYZAL [Suspect]
     Active Substance: LEVOCETIRIZINE DIHYDROCHLORIDE
     Indication: RASH
     Dosage: ONCE EVERY 3?4 DAYS FOR 6?7 MONTHS
     Route: 065

REACTIONS (1)
  - Pulmonary thrombosis [Unknown]
